FAERS Safety Report 4339861-3 (Version None)
Quarter: 2004Q2

REPORT INFORMATION
  Report Type: 
  Country: None (occurrence: None)
  Receive Date: 20040412
  Receipt Date: 20031028
  Transmission Date: 20050107
  Serious: No
  Sender: FDA-Public Use
  Company Number: GB-JNJFOC-20031006290

PATIENT
  Sex: Female

DRUGS (2)
  1. RISPERDAL [Suspect]
     Indication: DRUG USE FOR UNKNOWN INDICATION
     Dosage: ORAL
     Route: 048
  2. EPILIN (VALPROATE SODIUM) [Concomitant]

REACTIONS (1)
  - NEUTROPENIA [None]
